FAERS Safety Report 5562763-1 (Version None)
Quarter: 2007Q4

REPORT INFORMATION
  Report Type: 
  Country: None (occurrence: None)
  Receive Date: 20071217
  Receipt Date: 20071204
  Transmission Date: 20080405
  Serious: Yes (Other)
  Sender: FDA-Public Use
  Company Number: RO-AMGEN-UK251012

PATIENT
  Sex: Female

DRUGS (2)
  1. NEUPOGEN [Suspect]
     Indication: MYELODYSPLASTIC SYNDROME
     Route: 058
     Dates: start: 20070706, end: 20070706
  2. NEORECORMON [Concomitant]
     Route: 058
     Dates: start: 20061201, end: 20070901

REACTIONS (8)
  - ANGIOEDEMA [None]
  - COUGH [None]
  - DYSPHONIA [None]
  - FACE OEDEMA [None]
  - NASAL CONGESTION [None]
  - ODYNOPHAGIA [None]
  - PYREXIA [None]
  - SINUS CONGESTION [None]
